FAERS Safety Report 11703302 (Version 1)
Quarter: 2015Q4

REPORT INFORMATION
  Report Type: Spontaneous
  Country: BR (occurrence: BR)
  Receive Date: 20151105
  Receipt Date: 20151105
  Transmission Date: 20160304
  Serious: Yes (Other)
  Sender: FDA-Public Use
  Company Number: PHHY2015BR141708

PATIENT
  Age: 25 Year
  Sex: Male
  Weight: 84 kg

DRUGS (4)
  1. LOSARTANA POTASSICA [Suspect]
     Active Substance: LOSARTAN
     Indication: PRODUCT USED FOR UNKNOWN INDICATION
     Dosage: 25 MG, QD
     Route: 065
  2. SERTRALINE [Suspect]
     Active Substance: SERTRALINE HYDROCHLORIDE
     Indication: AGITATION
  3. SERTRALINE [Suspect]
     Active Substance: SERTRALINE HYDROCHLORIDE
     Indication: MALAISE
     Dosage: 50 MG, QD
     Route: 048
  4. SERTRALINE [Suspect]
     Active Substance: SERTRALINE HYDROCHLORIDE
     Indication: SHOCK

REACTIONS (5)
  - Mental impairment [Unknown]
  - Heart rate increased [Unknown]
  - Asthenia [Unknown]
  - Vomiting [Recovered/Resolved]
  - Hypoaesthesia [Unknown]
